FAERS Safety Report 6981937-6 (Version None)
Quarter: 2010Q3

REPORT INFORMATION
  Report Type: 
  Country: None (occurrence: None)
  Receive Date: 20100914
  Receipt Date: 20091008
  Transmission Date: 20110219
  Serious: No
  Sender: FDA-Public Use
  Company Number: US-PFIZER INC-2009282266

PATIENT
  Sex: Female

DRUGS (6)
  1. LYRICA [Suspect]
     Indication: BURNING SENSATION
     Dosage: 75 MG, 2X/DAY
     Dates: start: 20090101
  2. GLUCOSAMINE [Concomitant]
     Dosage: UNK
  3. LEVOXYL [Concomitant]
     Dosage: UNK
  4. HYDROCODONE [Concomitant]
     Dosage: UNK
  5. BACLOFEN [Concomitant]
     Dosage: UNK
  6. VITAMIN D [Concomitant]
     Dosage: UNK

REACTIONS (1)
  - DRUG INEFFECTIVE [None]
